FAERS Safety Report 10594952 (Version 1)
Quarter: 2014Q4

REPORT INFORMATION
  Report Type: Report from Study
  Country: US (occurrence: US)
  Receive Date: 20141120
  Receipt Date: 20141120
  Transmission Date: 20150529
  Serious: Yes (Hospitalization)
  Sender: FDA-Public Use
  Company Number: US-BIOGENIDEC-2014BI120374

PATIENT
  Sex: Female

DRUGS (2)
  1. TYSABRI [Suspect]
     Active Substance: NATALIZUMAB
     Indication: MULTIPLE SCLEROSIS
     Route: 042
  2. TYSABRI [Suspect]
     Active Substance: NATALIZUMAB
     Indication: MULTIPLE SCLEROSIS
     Route: 042
     Dates: start: 20120224

REACTIONS (17)
  - Confusional state [Not Recovered/Not Resolved]
  - Psychotic disorder [Not Recovered/Not Resolved]
  - Feeling hot [Unknown]
  - Agitation [Not Recovered/Not Resolved]
  - Thyroid disorder [Not Recovered/Not Resolved]
  - Initial insomnia [Not Recovered/Not Resolved]
  - Stress [Not Recovered/Not Resolved]
  - Mental impairment [Unknown]
  - Feeling abnormal [Unknown]
  - Asthenia [Not Recovered/Not Resolved]
  - Depression [Not Recovered/Not Resolved]
  - Balance disorder [Not Recovered/Not Resolved]
  - Nausea [Not Recovered/Not Resolved]
  - Blood pressure abnormal [Not Recovered/Not Resolved]
  - Gastrooesophageal reflux disease [Not Recovered/Not Resolved]
  - Gait disturbance [Not Recovered/Not Resolved]
  - Crying [Unknown]
